FAERS Safety Report 4813284-2 (Version None)
Quarter: 2005Q4

REPORT INFORMATION
  Report Type: 
  Country: None (occurrence: None)
  Receive Date: 20051028
  Receipt Date: 20050422
  Transmission Date: 20060501
  Serious: No
  Sender: FDA-Public Use
  Company Number: US-GLAXOSMITHKLINE-A0555383A

PATIENT
  Age: 78 Year
  Sex: Male

DRUGS (11)
  1. ADVAIR DISKUS 100/50 [Suspect]
     Indication: CHRONIC OBSTRUCTIVE PULMONARY DISEASE
     Dosage: 250MCG TWICE PER DAY
     Route: 055
     Dates: start: 20041001
  2. GLIPIZIDE [Concomitant]
  3. LIPITOR [Concomitant]
  4. GLUCOPHAGE [Concomitant]
  5. FLOMAX [Concomitant]
  6. AVANDAMET [Concomitant]
  7. COUMADIN [Concomitant]
  8. ARICEPT [Concomitant]
  9. SPIRIVA [Concomitant]
  10. NAMENDA [Concomitant]
  11. VITAMINS [Concomitant]

REACTIONS (3)
  - APHONIA [None]
  - DYSPHONIA [None]
  - PHARMACEUTICAL PRODUCT COMPLAINT [None]
